FAERS Safety Report 9364944 (Version 3)
Quarter: 2013Q3

REPORT INFORMATION
  Report Type: Spontaneous
  Country: US (occurrence: US)
  Receive Date: 20130624
  Receipt Date: 20130806
  Transmission Date: 20140515
  Serious: Yes (Hospitalization, Other)
  Sender: FDA-Public Use
  Company Number: US-UCBSA-089401

PATIENT
  Sex: Male
  Weight: 97.52 kg

DRUGS (5)
  1. CIMZIA [Suspect]
     Indication: CROHN^S DISEASE
     Dosage: FOR 6 MONTHS
     Dates: start: 2010, end: 2010
  2. ADALIMUMAB [Suspect]
     Indication: CROHN^S DISEASE
     Route: 058
     Dates: start: 2008
  3. ADALIMUMAB [Suspect]
     Indication: CROHN^S DISEASE
     Route: 058
     Dates: end: 2010
  4. PREDNISONE [Concomitant]
  5. BUDESONIDE [Concomitant]

REACTIONS (3)
  - Crohn^s disease [Unknown]
  - Papilloma viral infection [Unknown]
  - Surgery [Unknown]
